FAERS Safety Report 10192392 (Version 1)
Quarter: 2014Q2

REPORT INFORMATION
  Report Type: Spontaneous
  Country: US (occurrence: US)
  Receive Date: 20140523
  Receipt Date: 20140523
  Transmission Date: 20141212
  Serious: Yes (Other)
  Sender: FDA-Public Use
  Company Number: US-ACTAVIS-2014-11013

PATIENT
  Age: 77 Year
  Sex: Male

DRUGS (7)
  1. FUROSEMIDE (WATSON LABORATORIES) [Suspect]
     Indication: CARDIAC FAILURE CONGESTIVE
     Dosage: 40-160 MG/DAY
     Route: 048
  2. FUROSEMIDE (WATSON LABORATORIES) [Suspect]
     Dosage: UNK
     Route: 042
  3. FUROSEMIDE (WATSON LABORATORIES) [Suspect]
     Dosage: 40 MG, SINGLE
     Route: 065
  4. SIMVASTATIN [Concomitant]
     Indication: PRODUCT USED FOR UNKNOWN INDICATION
     Dosage: UNK
     Route: 065
  5. POTASSIUM CHLORIDE [Concomitant]
     Indication: PRODUCT USED FOR UNKNOWN INDICATION
     Dosage: UNK
     Route: 065
  6. CHLORTHALIDONE [Concomitant]
     Indication: PRODUCT USED FOR UNKNOWN INDICATION
     Dosage: UNK
     Route: 065
  7. RAMIPRIL [Concomitant]
     Indication: PRODUCT USED FOR UNKNOWN INDICATION
     Dosage: UNK
     Route: 065

REACTIONS (2)
  - Thrombocytopenia [Recovered/Resolved]
  - Purpura [Recovered/Resolved]
